FAERS Safety Report 20703233 (Version 3)
Quarter: 2023Q2

REPORT INFORMATION
  Report Type: Report from Study
  Country: US (occurrence: US)
  Receive Date: 20220413
  Receipt Date: 20230524
  Transmission Date: 20230722
  Serious: No
  Sender: FDA-Public Use
  Company Number: US-ARGENX-2022-ARGX-US000475

PATIENT
  Age: 39 Year
  Sex: Female

DRUGS (2)
  1. VYVGART [Suspect]
     Active Substance: EFGARTIGIMOD ALFA-FCAB
     Indication: Myasthenia gravis
     Dosage: 630 MG, 1/WEEK
     Route: 042
     Dates: start: 20220303
  2. VYVGART [Suspect]
     Active Substance: EFGARTIGIMOD ALFA-FCAB
     Dosage: 630 MG, 1/WEEK
     Route: 042
     Dates: start: 20220707, end: 202209

REACTIONS (6)
  - Dizziness [Unknown]
  - Balance disorder [Unknown]
  - Drug ineffective [Not Recovered/Not Resolved]
  - Drug effect less than expected [Unknown]
  - Incorrect product administration duration [Unknown]
  - Symptom recurrence [Unknown]

NARRATIVE: CASE EVENT DATE: 20220723
